FAERS Safety Report 18711843 (Version 1)
Quarter: 2021Q1

REPORT INFORMATION
  Report Type: Spontaneous
  Country: GB (occurrence: GB)
  Receive Date: 20210107
  Receipt Date: 20210107
  Transmission Date: 20210419
  Serious: Yes (Death, Other)
  Sender: FDA-Public Use
  Company Number: GB-PFIZER INC-2020520969

PATIENT
  Age: 59 Year
  Sex: Female

DRUGS (3)
  1. EPIRUBICIN HCL [Suspect]
     Active Substance: EPIRUBICIN HYDROCHLORIDE
     Indication: CHOLANGIOCARCINOMA
     Dosage: THREE WEEKLY
     Route: 040
  2. CISPLATIN. [Suspect]
     Active Substance: CISPLATIN
     Indication: CHOLANGIOCARCINOMA
     Dosage: THREE WEEKLY
     Route: 042
  3. 5 FLUROURACIL [Concomitant]
     Active Substance: FLUOROURACIL
     Indication: CHOLANGIOCARCINOMA
     Dosage: UNK, CYCLIC (23 CYCLES)
     Route: 042

REACTIONS (2)
  - Renal failure [Unknown]
  - Neuropathy peripheral [Unknown]
